FAERS Safety Report 15695736 (Version 1)
Quarter: 2018Q4

REPORT INFORMATION
  Report Type: Spontaneous
  Country: SE (occurrence: SE)
  Receive Date: 20181206
  Receipt Date: 20181206
  Transmission Date: 20190205
  Serious: Yes (Other)
  Sender: FDA-Public Use
  Company Number: SE-TEVA-2018-SE-982824

PATIENT
  Age: 24 Year
  Sex: Female
  Weight: 84 kg

DRUGS (2)
  1. PAROXETINE. [Concomitant]
     Active Substance: PAROXETINE
     Dates: start: 2007, end: 2013
  2. MIRTAZAPINE. [Suspect]
     Active Substance: MIRTAZAPINE
     Indication: SLEEP DISORDER
     Dosage: 30 MILLIGRAM DAILY;
     Route: 065
     Dates: start: 20131128, end: 20131128

REACTIONS (8)
  - Visual impairment [Not Recovered/Not Resolved]
  - Aggression [Not Recovered/Not Resolved]
  - Tunnel vision [Not Recovered/Not Resolved]
  - Nausea [Not Recovered/Not Resolved]
  - Sensory loss [Not Recovered/Not Resolved]
  - Tremor [Not Recovered/Not Resolved]
  - Fatigue [Not Recovered/Not Resolved]
  - Disturbance in attention [Not Recovered/Not Resolved]

NARRATIVE: CASE EVENT DATE: 20131128
